FAERS Safety Report 9799439 (Version 1)
Quarter: 2014Q1

REPORT INFORMATION
  Report Type: Spontaneous
  Country: US (occurrence: None)
  Receive Date: 20140103
  Receipt Date: 20140103
  Transmission Date: 20141002
  Serious: Yes (Hospitalization)
  Sender: FDA-Public Use
  Company Number: None

PATIENT
  Age: 50 Year
  Sex: Male
  Weight: 98.96 kg

DRUGS (3)
  1. 5-FLUOROURACIL (5-FU) [Suspect]
  2. LEUCOVORIN CALCIUM [Suspect]
  3. OXALIPLATIN (ELOXATIN) [Suspect]

REACTIONS (5)
  - Urinary tract infection [None]
  - Enterovesical fistula [None]
  - Abscess [None]
  - Back pain [None]
  - Osteomyelitis [None]
